FAERS Safety Report 24859293 (Version 1)
Quarter: 2025Q1

REPORT INFORMATION
  Report Type: Spontaneous
  Country: US (occurrence: US)
  Receive Date: 20250118
  Receipt Date: 20250118
  Transmission Date: 20250409
  Serious: Yes (Death)
  Sender: AMGEN
  Company Number: US-AMGEN-USASP2025009090

PATIENT

DRUGS (1)
  1. PREDNISONE [Suspect]
     Active Substance: PREDNISONE
     Indication: Rheumatoid arthritis
     Dosage: {_10 MILLIGRAM OR } 10 MILLIGRAM, QD
     Route: 065

REACTIONS (1)
  - Death [Fatal]
